FAERS Safety Report 8287556-6 (Version None)
Quarter: 2012Q2

REPORT INFORMATION
  Report Type: 
  Country: None (occurrence: None)
  Receive Date: 20120411
  Receipt Date: 20120411
  Transmission Date: 20120825
  Serious: Yes (Other)
  Sender: FDA-Public Use
  Company Number: None

PATIENT
  Age: 54 Year
  Sex: Female

DRUGS (1)
  1. TRACLEER [Suspect]
     Indication: PULMONARY ARTERIAL HYPERTENSION
     Dosage: 62.5 MG BID PO
     Route: 048
     Dates: start: 20120301

REACTIONS (3)
  - HEADACHE [None]
  - SINUS DISORDER [None]
  - MUSCULAR WEAKNESS [None]
